FAERS Safety Report 26083539 (Version 1)
Quarter: 2025Q4

REPORT INFORMATION
  Report Type: Spontaneous
  Country: JP (occurrence: JP)
  Receive Date: 20251124
  Receipt Date: 20251124
  Transmission Date: 20260117
  Serious: Yes (Other)
  Sender: ALEXION PHARMACEUTICALS
  Company Number: JP-ASTRAZENECA-202511GLO019568JP

PATIENT
  Age: 8 Decade
  Sex: Female

DRUGS (3)
  1. OSIMERTINIB [Suspect]
     Active Substance: OSIMERTINIB
     Indication: Lung adenocarcinoma
     Route: 065
  2. OSIMERTINIB [Suspect]
     Active Substance: OSIMERTINIB
     Route: 065
  3. GEFITINIB [Suspect]
     Active Substance: GEFITINIB
     Indication: Lung adenocarcinoma
     Route: 065

REACTIONS (4)
  - Malignant neoplasm progression [Unknown]
  - Polyarteritis nodosa [Recovered/Resolved]
  - Interstitial lung disease [Unknown]
  - Henoch-Schonlein purpura [Recovering/Resolving]
